FAERS Safety Report 21267623 (Version 1)
Quarter: 2022Q3

REPORT INFORMATION
  Report Type: Spontaneous
  Country: US (occurrence: US)
  Receive Date: 20220829
  Receipt Date: 20220829
  Transmission Date: 20221026
  Serious: Yes (Other)
  Sender: FDA-Public Use
  Company Number: US-ADMA BIOLOGICS INC.-US-2022ADM000057

PATIENT

DRUGS (1)
  1. ASCENIV [Suspect]
     Active Substance: HUMAN IMMUNOGLOBULIN G
     Indication: Kawasaki^s disease
     Dosage: 2 G/KG DURING INFUSION TIME OF LESS THAN 10 HOURS
     Route: 042

REACTIONS (1)
  - Acute kidney injury [Unknown]
